FAERS Safety Report 9633203 (Version 1)
Quarter: 2013Q4

REPORT INFORMATION
  Report Type: Spontaneous
  Country: US (occurrence: None)
  Receive Date: 20131018
  Receipt Date: 20131018
  Transmission Date: 20140711
  Serious: Yes (Hospitalization)
  Sender: FDA-Public Use
  Company Number: None

PATIENT
  Age: 54 Year
  Sex: Female
  Weight: 75.3 kg

DRUGS (1)
  1. CEFTAROLINE [Suspect]

REACTIONS (2)
  - Rash papular [None]
  - Blister [None]
